FAERS Safety Report 7076905-2 (Version None)
Quarter: 2010Q4

REPORT INFORMATION
  Report Type: 
  Country: None (occurrence: None)
  Receive Date: 20101101
  Receipt Date: 20101022
  Transmission Date: 20110411
  Serious: Yes (Hospitalization)
  Sender: FDA-Public Use
  Company Number: US-NOVOPROD-316926

PATIENT
  Sex: Female
  Weight: 113.38 kg

DRUGS (3)
  1. NOVOLOG [Suspect]
     Indication: TYPE 1 DIABETES MELLITUS
     Dosage: UNK
     Route: 058
     Dates: start: 20090101
  2. CAPRIL                             /00171102/ [Concomitant]
     Indication: PRODUCT USED FOR UNKNOWN INDICATION
  3. DILANTIN [Concomitant]
     Indication: CONVULSION

REACTIONS (1)
  - URINARY TRACT INFECTION [None]
